FAERS Safety Report 5310470-2 (Version None)
Quarter: 2007Q2

REPORT INFORMATION
  Report Type: 
  Country: None (occurrence: None)
  Receive Date: 20070427
  Receipt Date: 20070419
  Transmission Date: 20071010
  Serious: Yes (Other)
  Sender: FDA-Public Use
  Company Number: US-JNJFOC-20070103581

PATIENT
  Age: 72 Year
  Sex: Female

DRUGS (3)
  1. REMICADE [Suspect]
     Dosage: ON INFLIXIMAB FOR ^SEVERAL YEARS^.
     Route: 042
  2. REMICADE [Suspect]
     Indication: RHEUMATOID ARTHRITIS
     Dosage: ON INFLIXIMAB FOR ^SEVERAL YEARS^.
     Route: 042
  3. METHOTREXATE [Concomitant]
     Indication: RHEUMATOID ARTHRITIS

REACTIONS (2)
  - LUNG NEOPLASM [None]
  - PNEUMONIA [None]
